FAERS Safety Report 14370189 (Version 1)
Quarter: 2018Q1

REPORT INFORMATION
  Report Type: Spontaneous
  Country: CZ (occurrence: CZ)
  Receive Date: 20180110
  Receipt Date: 20180110
  Transmission Date: 20180509
  Serious: Yes (Hospitalization, Other)
  Sender: FDA-Public Use
  Company Number: CZ-CIPLA LTD.-2017CZ31101

PATIENT

DRUGS (11)
  1. RIVOCOR 5 MG [Concomitant]
     Dosage: UNK, 1/2-0-0 ()
     Route: 065
  2. GRANSETRON 3 MG [Concomitant]
     Indication: PREMEDICATION
     Dosage: 3 MG UNK
     Route: 017
     Dates: start: 20171214, end: 20171214
  3. RANITIDINE. [Concomitant]
     Active Substance: RANITIDINE
     Indication: PREMEDICATION
     Dosage: 50 MG, UNK
     Route: 017
     Dates: start: 20171214, end: 20171214
  4. OMEPRAZOL 20 MG [Concomitant]
     Active Substance: OMEPRAZOLE
     Dosage: UNK, 1-0-0 ( )
     Route: 065
  5. DITHIADEN [Concomitant]
     Active Substance: BISULEPIN
     Indication: PREMEDICATION
     Dosage: 1 DF,UNK
     Route: 017
     Dates: start: 20171214, end: 20171214
  6. TAXOL [Concomitant]
     Active Substance: PACLITAXEL
     Indication: MALIGNANT PERITONEAL NEOPLASM
     Dosage: UNK
     Route: 051
     Dates: start: 20171214, end: 20171214
  7. SERTIVAN 50 MG [Concomitant]
     Dosage: UNK, 1-0-0 ( )
     Route: 065
  8. FRAXIPARINE [Concomitant]
     Active Substance: NADROPARIN CALCIUM
     Dosage: UNK, 1-0-0 ( )
     Route: 065
  9. SIOFOR 500 [Concomitant]
     Dosage: UNK, 1-0-1 ( )
     Route: 065
  10. CARBOPLATIN. [Suspect]
     Active Substance: CARBOPLATIN
     Indication: MALIGNANT PERITONEAL NEOPLASM
     Dosage: UNK, 10 MG / ML
     Route: 017
     Dates: start: 20171214, end: 20171214
  11. ATORIS 20 MG [Concomitant]
     Dosage: UNK, 0-0-1 ( )
     Route: 065

REACTIONS (4)
  - Presyncope [Recovering/Resolving]
  - Drug eruption [Recovering/Resolving]
  - Wheezing [Recovering/Resolving]
  - Respiratory distress [Recovering/Resolving]

NARRATIVE: CASE EVENT DATE: 20141214
